FAERS Safety Report 7246333-5 (Version None)
Quarter: 2011Q1

REPORT INFORMATION
  Report Type: 
  Country: None (occurrence: None)
  Receive Date: 20110126
  Receipt Date: 20110119
  Transmission Date: 20110831
  Serious: Yes (Hospitalization, Other)
  Sender: FDA-Public Use
  Company Number: US-PFIZER INC-2011004341

PATIENT
  Sex: Male
  Weight: 79 kg

DRUGS (6)
  1. SPIRIVA [Interacting]
     Indication: ASTHMA
     Dosage: UNK
  2. PROLIXIN [Concomitant]
     Dosage: 10 MG, UNK
  3. CHANTIX [Suspect]
     Indication: SMOKING CESSATION THERAPY
     Dosage: 0.5 MG, DAILY
     Route: 048
     Dates: start: 20110106
  4. ARFORMOTEROL INHALED [Interacting]
     Indication: ASTHMA
     Dosage: UNK
  5. ALBUTEROL [Interacting]
     Indication: ASTHMA
     Dosage: UNK
  6. WELLBUTRIN [Concomitant]
     Dosage: 300 MG, UNK

REACTIONS (3)
  - PNEUMONIA [None]
  - DRUG INTERACTION [None]
  - DYSPNOEA [None]
